FAERS Safety Report 16280463 (Version 1)
Quarter: 2019Q2

REPORT INFORMATION
  Report Type: Spontaneous
  Country: US (occurrence: US)
  Receive Date: 20190401
  Receipt Date: 20190401
  Transmission Date: 20190711
  Serious: Yes (Hospitalization)
  Sender: FDA-Public Use
  Company Number: None

PATIENT
  Age: 66 Year
  Sex: Male

DRUGS (12)
  1. GLATIRAMER 40MG [Suspect]
     Active Substance: GLATIRAMER
     Indication: MULTIPLE SCLEROSIS
     Route: 058
     Dates: start: 20190302
  2. TIZANIDINE. [Concomitant]
     Active Substance: TIZANIDINE
  3. LORAZEPAM. [Concomitant]
     Active Substance: LORAZEPAM
  4. METHENAM HIP [Concomitant]
  5. DULOXETINE. [Concomitant]
     Active Substance: DULOXETINE
  6. METFORMIN [Concomitant]
     Active Substance: METFORMIN HYDROCHLORIDE
  7. METOCLOPRAM [Concomitant]
     Active Substance: METOCLOPRAMIDE
  8. TESTOSTERONE. [Concomitant]
     Active Substance: TESTOSTERONE
  9. BACLOFEN. [Concomitant]
     Active Substance: BACLOFEN
  10. SODIUM CHLOR SOL [Concomitant]
  11. GENTAMICIN. [Concomitant]
     Active Substance: GENTAMICIN
  12. LYRICA [Concomitant]
     Active Substance: PREGABALIN

REACTIONS (1)
  - Wound [None]

NARRATIVE: CASE EVENT DATE: 20190308
